FAERS Safety Report 21578773 (Version 2)
Quarter: 2022Q4

REPORT INFORMATION
  Report Type: Spontaneous
  Country: GR (occurrence: GR)
  Receive Date: 20221110
  Receipt Date: 20221122
  Transmission Date: 20230113
  Serious: Yes (Other)
  Sender: FDA-Public Use
  Company Number: GR-002147023-NVSC2022GR229071

PATIENT
  Age: 35 Year
  Sex: Male

DRUGS (4)
  1. COSENTYX [Suspect]
     Active Substance: SECUKINUMAB
     Indication: Psoriasis
     Dosage: UNK (FIRST ADMINISTRATION)
     Route: 065
  2. COSENTYX [Suspect]
     Active Substance: SECUKINUMAB
     Dosage: 1 DOSAGE FORM
     Route: 065
  3. COSENTYX [Suspect]
     Active Substance: SECUKINUMAB
     Dosage: UNK (STRENGTH: 150 MG/1 ML)
     Route: 065
  4. COSENTYX [Suspect]
     Active Substance: SECUKINUMAB
     Dosage: 300 MG (150 MG X 2 THE LAST TWO MONTHS) (STRENGTH: 300 MG/2 ML)
     Route: 065

REACTIONS (4)
  - Injection site mass [Recovered/Resolved]
  - Device leakage [Unknown]
  - Device defective [Unknown]
  - Injection site mass [Unknown]

NARRATIVE: CASE EVENT DATE: 20221006
